FAERS Safety Report 20908435 (Version 1)
Quarter: 2022Q2

REPORT INFORMATION
  Report Type: Spontaneous
  Country: FR (occurrence: FR)
  Receive Date: 20220603
  Receipt Date: 20220603
  Transmission Date: 20220721
  Serious: Yes (Other)
  Sender: FDA-Public Use
  Company Number: None

PATIENT
  Age: 52 Year
  Sex: Female
  Weight: 63 kg

DRUGS (2)
  1. KEPPRA [Suspect]
     Active Substance: LEVETIRACETAM
     Indication: Epilepsy
     Dosage: 1 DOSAGE FORM, ONCE DAILY (1 TABLET PER DAY)
     Route: 048
     Dates: start: 20220311, end: 20220317
  2. KEPPRA [Suspect]
     Active Substance: LEVETIRACETAM
     Dosage: 2 DOSAGE FORM, ONCE DAILY (2 TABLETS PER DAY)
     Route: 048
     Dates: start: 20220317, end: 20220324

REACTIONS (5)
  - Aggression [Recovered/Resolved]
  - Fatigue [Recovered/Resolved]
  - Irritability [Recovered/Resolved]
  - Loss of consciousness [Recovered/Resolved]
  - Product use issue [Unknown]

NARRATIVE: CASE EVENT DATE: 20220311
